FAERS Safety Report 10994333 (Version 1)
Quarter: 2015Q2

REPORT INFORMATION
  Report Type: Spontaneous
  Country: CA (occurrence: CA)
  Receive Date: 20150407
  Receipt Date: 20150407
  Transmission Date: 20150821
  Serious: Yes (Hospitalization, Other)
  Sender: FDA-Public Use
  Company Number: CA-TEVA-552648ACC

PATIENT
  Age: 32 Year
  Sex: Female
  Weight: 80 kg

DRUGS (1)
  1. NAPROXEN. [Suspect]
     Active Substance: NAPROXEN
     Indication: UTERINE HAEMORRHAGE
     Dosage: 1000 MILLIGRAM DAILY;
     Route: 065

REACTIONS (3)
  - Anaemia [Recovered/Resolved]
  - Menorrhagia [Recovered/Resolved]
  - Thrombocytopenia [Recovered/Resolved]
